FAERS Safety Report 8459288 (Version 10)
Quarter: 2017Q1

REPORT INFORMATION
  Report Type: Report from Study
  Country: JP (occurrence: JP)
  Receive Date: 20120314
  Receipt Date: 20170324
  Transmission Date: 20170429
  Serious: Yes (Hospitalization, Other)
  Sender: FDA-Public Use
  Company Number: PHHY2012JP020481

PATIENT
  Age: 54 Year
  Sex: Male
  Weight: 67 kg

DRUGS (122)
  1. CERTICAN [Suspect]
     Active Substance: EVEROLIMUS
     Dosage: 1.25 MG, QD
     Route: 048
     Dates: start: 20090825, end: 20090826
  2. CERTICAN [Suspect]
     Active Substance: EVEROLIMUS
     Dosage: 1 MG, QD
     Route: 048
     Dates: start: 20091015, end: 20091015
  3. CERTICAN [Suspect]
     Active Substance: EVEROLIMUS
     Dosage: 1 MG, QD
     Route: 048
     Dates: start: 20130913, end: 20140417
  4. MEROPENEM. [Suspect]
     Active Substance: MEROPENEM
     Indication: PRODUCT USED FOR UNKNOWN INDICATION
     Dosage: 1.5 G, QD
     Route: 042
     Dates: start: 20090811, end: 20090824
  5. PROGRAF [Suspect]
     Active Substance: TACROLIMUS\TACROLIMUS ANHYDROUS
     Dosage: 4.4 MG, QD
     Route: 048
     Dates: start: 20090723, end: 20090809
  6. PROGRAF [Suspect]
     Active Substance: TACROLIMUS\TACROLIMUS ANHYDROUS
     Dosage: 3.7 MG, QD
     Route: 048
     Dates: start: 20090817, end: 20090901
  7. PROGRAF [Suspect]
     Active Substance: TACROLIMUS\TACROLIMUS ANHYDROUS
     Dosage: 4.4 MG, QD
     Route: 048
     Dates: start: 20090915, end: 20090915
  8. PROGRAF [Suspect]
     Active Substance: TACROLIMUS\TACROLIMUS ANHYDROUS
     Dosage: 6.5 MG, QD
     Route: 048
     Dates: start: 20090925, end: 20091001
  9. PROGRAF [Suspect]
     Active Substance: TACROLIMUS\TACROLIMUS ANHYDROUS
     Dosage: 5.6 MG, QD
     Route: 048
     Dates: start: 20100122, end: 20100127
  10. PROGRAF [Suspect]
     Active Substance: TACROLIMUS\TACROLIMUS ANHYDROUS
     Dosage: 2.9 MG, QD
     Route: 048
     Dates: end: 20111226
  11. PROGRAF [Suspect]
     Active Substance: TACROLIMUS\TACROLIMUS ANHYDROUS
     Dosage: 1.7 MG, QD
     Route: 048
     Dates: start: 20120619, end: 20120628
  12. PROGRAF [Suspect]
     Active Substance: TACROLIMUS\TACROLIMUS ANHYDROUS
     Dosage: 3 MG, QD
     Route: 048
     Dates: start: 20121216, end: 20121216
  13. CELLCEPT [Suspect]
     Active Substance: MYCOPHENOLATE MOFETIL\MYCOPHENOLATE MOFETIL HYDROCHLORIDE
     Indication: PRODUCT USED FOR UNKNOWN INDICATION
     Dosage: UNK
     Route: 048
  14. RASENAZOLIN [Concomitant]
     Active Substance: CEFAZOLIN SODIUM
     Indication: PRODUCT USED FOR UNKNOWN INDICATION
     Dosage: 3 G, UNK
     Route: 042
     Dates: start: 20090801
  15. VANCOMYCIN HYDROCHLORIDE. [Concomitant]
     Active Substance: VANCOMYCIN HYDROCHLORIDE
     Indication: PRODUCT USED FOR UNKNOWN INDICATION
     Dosage: 1500 MG, UNK
     Route: 042
     Dates: start: 20090811
  16. AMARYL [Concomitant]
     Active Substance: GLIMEPIRIDE
     Indication: PRODUCT USED FOR UNKNOWN INDICATION
     Dosage: 0.5 MG, UNK
     Route: 048
     Dates: start: 20100716
  17. CERTICAN [Suspect]
     Active Substance: EVEROLIMUS
     Dosage: 0.75 MG, QD
     Route: 048
     Dates: start: 20090810, end: 20090811
  18. CERTICAN [Suspect]
     Active Substance: EVEROLIMUS
     Dosage: 1 MG, QD
     Route: 048
     Dates: start: 20090827, end: 20090901
  19. CERTICAN [Suspect]
     Active Substance: EVEROLIMUS
     Dosage: 0.5 MG, QD
     Route: 048
     Dates: start: 20091014, end: 20091014
  20. CERTICAN [Suspect]
     Active Substance: EVEROLIMUS
     Dosage: 1.25 MG, UNK
     Route: 048
     Dates: start: 20121220, end: 20121225
  21. CERTICAN [Suspect]
     Active Substance: EVEROLIMUS
     Dosage: 0.75 MG, QD
     Route: 048
     Dates: start: 20161020
  22. PROGRAF [Suspect]
     Active Substance: TACROLIMUS\TACROLIMUS ANHYDROUS
     Dosage: 7.7 MG, QD
     Route: 048
     Dates: end: 20091215
  23. PROGRAF [Suspect]
     Active Substance: TACROLIMUS\TACROLIMUS ANHYDROUS
     Dosage: 6.0 MG, UNK
     Route: 048
     Dates: start: 20100216, end: 20100325
  24. PROGRAF [Suspect]
     Active Substance: TACROLIMUS\TACROLIMUS ANHYDROUS
     Dosage: 5.6 MG, QD
     Route: 048
     Dates: start: 20100526, end: 20100620
  25. AKINETON [Suspect]
     Active Substance: BIPERIDEN HYDROCHLORIDE
     Indication: PRODUCT USED FOR UNKNOWN INDICATION
     Dosage: 3 MG, QD
     Route: 048
     Dates: start: 20080814, end: 20090824
  26. RISPERDAL [Concomitant]
     Active Substance: RISPERIDONE
     Dosage: 1 MG, UNK
     Route: 048
     Dates: start: 20090824, end: 20090830
  27. RISPERDAL [Concomitant]
     Active Substance: RISPERIDONE
     Dosage: 3 MG, UNK
     Route: 048
     Dates: start: 20090905, end: 20090907
  28. SERENACE [Concomitant]
     Active Substance: HALOPERIDOL
     Dosage: 2.5 MG, UNK
     Route: 048
     Dates: start: 20090903, end: 20090905
  29. MAINTATE [Concomitant]
     Active Substance: BISOPROLOL FUMARATE
     Indication: PRODUCT USED FOR UNKNOWN INDICATION
     Dosage: 2.5 MG, UNK
     Route: 048
     Dates: start: 20090907
  30. LIPITOR [Concomitant]
     Active Substance: ATORVASTATIN CALCIUM
     Dosage: 20 MG, UNK
     Route: 048
     Dates: start: 20100215
  31. ACICLOVIR [Concomitant]
     Active Substance: ACYCLOVIR
     Indication: PRODUCT USED FOR UNKNOWN INDICATION
     Dosage: 750 MG, UNK
     Route: 042
     Dates: start: 20100410, end: 20100421
  32. CERTICAN [Suspect]
     Active Substance: EVEROLIMUS
     Indication: HEART TRANSPLANT
     Dosage: 1.5 MG, UNK
     Route: 048
     Dates: start: 20090730, end: 20090806
  33. CERTICAN [Suspect]
     Active Substance: EVEROLIMUS
     Dosage: 0.5 MG, QD
     Route: 048
     Dates: start: 20090808, end: 20090809
  34. CERTICAN [Suspect]
     Active Substance: EVEROLIMUS
     Dosage: 1 MG, QD
     Route: 048
     Dates: start: 20121214, end: 20121219
  35. CERTICAN [Suspect]
     Active Substance: EVEROLIMUS
     Dosage: 1 MG, QD
     Route: 048
     Dates: start: 20141114, end: 20161019
  36. PROGRAF [Suspect]
     Active Substance: TACROLIMUS\TACROLIMUS ANHYDROUS
     Indication: HEART TRANSPLANT
     Dosage: 5.0 MG, UNK
     Route: 048
     Dates: start: 20090718, end: 20090721
  37. PROGRAF [Suspect]
     Active Substance: TACROLIMUS\TACROLIMUS ANHYDROUS
     Dosage: 4.7 MG, QD
     Route: 048
     Dates: start: 20090722, end: 20090722
  38. PROGRAF [Suspect]
     Active Substance: TACROLIMUS\TACROLIMUS ANHYDROUS
     Dosage: 4.2 MG, QD
     Route: 048
     Dates: start: 20090810, end: 20090814
  39. PROGRAF [Suspect]
     Active Substance: TACROLIMUS\TACROLIMUS ANHYDROUS
     Dosage: 5.7 MG, QD
     Route: 048
     Dates: start: 20090921, end: 20090921
  40. PROGRAF [Suspect]
     Active Substance: TACROLIMUS\TACROLIMUS ANHYDROUS
     Dosage: 5.2 MG, QD
     Route: 048
     Dates: start: 20100712, end: 20110724
  41. PROGRAF [Suspect]
     Active Substance: TACROLIMUS\TACROLIMUS ANHYDROUS
     Dosage: 2.4 MG, QD
     Route: 048
     Dates: start: 20120225, end: 20120323
  42. PREDONINE [Suspect]
     Active Substance: PREDNISOLONE
     Indication: HEART TRANSPLANT
     Dosage: 2.5 MG, QD
     Route: 048
     Dates: start: 20090106, end: 20090902
  43. DOGMATYL [Suspect]
     Active Substance: SULPIRIDE
     Indication: PRODUCT USED FOR UNKNOWN INDICATION
     Dosage: 100 MG, UNK
     Route: 048
     Dates: start: 20100408, end: 20100522
  44. TRAZODONE [Concomitant]
     Active Substance: TRAZODONE HYDROCHLORIDE
     Indication: PRODUCT USED FOR UNKNOWN INDICATION
     Dosage: 50 MG, UNK
     Route: 048
     Dates: end: 20090823
  45. PRIMOBOLAN-DEPOT [Concomitant]
     Active Substance: METHENOLONE ENANTHATE
     Indication: PRODUCT USED FOR UNKNOWN INDICATION
     Dosage: 15 MG, UNK
     Route: 048
     Dates: start: 20090917
  46. LIPITOR [Concomitant]
     Active Substance: ATORVASTATIN CALCIUM
     Indication: PROPHYLAXIS
     Dosage: 10 MG, UNK
     Route: 048
     Dates: start: 20100128, end: 20100214
  47. BAKTAR [Concomitant]
     Active Substance: SULFAMETHOXAZOLE\TRIMETHOPRIM
     Indication: PRODUCT USED FOR UNKNOWN INDICATION
     Dosage: 1 DF, QW3
     Route: 048
     Dates: end: 20090824
  48. PROGRAF [Suspect]
     Active Substance: TACROLIMUS\TACROLIMUS ANHYDROUS
     Dosage: 6.2 MG, QD
     Route: 048
     Dates: start: 20091002, end: 20091004
  49. PROGRAF [Suspect]
     Active Substance: TACROLIMUS\TACROLIMUS ANHYDROUS
     Dosage: 6.4 MG, QD
     Route: 048
     Dates: start: 20091005, end: 20091021
  50. PROGRAF [Suspect]
     Active Substance: TACROLIMUS\TACROLIMUS ANHYDROUS
     Dosage: 6.4 MG, QD
     Route: 048
     Dates: start: 20091109
  51. PROGRAF [Suspect]
     Active Substance: TACROLIMUS\TACROLIMUS ANHYDROUS
     Dosage: 5.0 MG, UNK
     Route: 048
     Dates: start: 20100326, end: 20100327
  52. PREDONINE [Suspect]
     Active Substance: PREDNISOLONE
     Dosage: UNK
     Route: 048
     Dates: start: 20100528
  53. VANCOMYCIN HYDROCHLORIDE. [Concomitant]
     Active Substance: VANCOMYCIN HYDROCHLORIDE
     Dosage: 1500 MG, UNK
     Route: 042
     Dates: start: 20090811, end: 20090817
  54. LANDSEN [Concomitant]
     Active Substance: CLONAZEPAM
     Indication: PRODUCT USED FOR UNKNOWN INDICATION
     Dosage: 1 MG, UNK
     Route: 048
     Dates: start: 20090915
  55. CERTICAN [Suspect]
     Active Substance: EVEROLIMUS
     Dosage: 1 MG, QD
     Route: 048
     Dates: start: 20090812, end: 20090824
  56. CERTICAN [Suspect]
     Active Substance: EVEROLIMUS
     Dosage: 1 MG, UNK
     Route: 048
     Dates: start: 20100220, end: 20100308
  57. CERTICAN [Suspect]
     Active Substance: EVEROLIMUS
     Dosage: 0.75 MG, UNK
     Route: 048
     Dates: start: 20110314, end: 20121213
  58. CERTICAN [Suspect]
     Active Substance: EVEROLIMUS
     Dosage: 1 MG, UNK
     Route: 048
     Dates: start: 20121226, end: 20130620
  59. CERTICAN [Suspect]
     Active Substance: EVEROLIMUS
     Dosage: 1.25 MG, QD
     Route: 048
     Dates: start: 20130621, end: 20130912
  60. CERTICAN [Suspect]
     Active Substance: EVEROLIMUS
     Dosage: 0.75 MG, QD
     Route: 048
     Dates: start: 20141010, end: 20141113
  61. MEROPENEM. [Suspect]
     Active Substance: MEROPENEM
     Dosage: UNK
     Route: 042
     Dates: start: 20100403, end: 20100410
  62. RIVOTRIL [Suspect]
     Active Substance: CLONAZEPAM
     Indication: PRODUCT USED FOR UNKNOWN INDICATION
     Dosage: 1.5 MG, QD
     Route: 048
     Dates: end: 20090824
  63. PROGRAF [Suspect]
     Active Substance: TACROLIMUS\TACROLIMUS ANHYDROUS
     Dosage: 5.8 MG, QD
     Route: 048
     Dates: start: 20100328, end: 20100406
  64. PROGRAF [Suspect]
     Active Substance: TACROLIMUS\TACROLIMUS ANHYDROUS
     Dosage: 5.8 MG, QD
     Route: 048
     Dates: start: 20100409
  65. PROGRAF [Suspect]
     Active Substance: TACROLIMUS\TACROLIMUS ANHYDROUS
     Dosage: 3.2 MG, QD
     Route: 048
     Dates: start: 20110927, end: 20111024
  66. PROGRAF [Suspect]
     Active Substance: TACROLIMUS\TACROLIMUS ANHYDROUS
     Dosage: 2.7 MG, QD
     Route: 048
     Dates: start: 20120131, end: 20120224
  67. RISPERDAL [Concomitant]
     Active Substance: RISPERIDONE
     Dosage: 3.5 MG, UNK
     Route: 048
     Dates: start: 20090908
  68. SERENACE [Concomitant]
     Active Substance: HALOPERIDOL
     Indication: PRODUCT USED FOR UNKNOWN INDICATION
     Dosage: 5 MG, UNK
     Route: 048
     Dates: start: 20090902, end: 20090902
  69. MAGLAX [Concomitant]
     Active Substance: MAGNESIUM OXIDE
     Indication: PRODUCT USED FOR UNKNOWN INDICATION
     Dosage: 660 MG, UNK
     Route: 048
     Dates: start: 20090822, end: 20090901
  70. AMLODIPINE [Concomitant]
     Active Substance: AMLODIPINE BESYLATE
     Indication: PRODUCT USED FOR UNKNOWN INDICATION
     Dosage: 5 MG, UNK
     Route: 048
     Dates: start: 20090909
  71. DALACIN T [Concomitant]
     Active Substance: CLINDAMYCIN PHOSPHATE
     Indication: PRODUCT USED FOR UNKNOWN INDICATION
     Dosage: UNK
     Route: 065
  72. NORVASC [Concomitant]
     Active Substance: AMLODIPINE BESYLATE
     Indication: HYPERTENSION
     Dosage: 5 MG, UNK
     Route: 048
  73. CERTICAN [Suspect]
     Active Substance: EVEROLIMUS
     Dosage: 0.5 MG, QD
     Route: 048
     Dates: start: 20091016, end: 20091016
  74. CERTICAN [Suspect]
     Active Substance: EVEROLIMUS
     Dosage: 0.75 MG, QD
     Route: 048
     Dates: start: 20100416
  75. MEROPENEM. [Suspect]
     Active Substance: MEROPENEM
     Dosage: 1.5 G, QD
     Route: 042
     Dates: start: 20090831, end: 20090909
  76. PROGRAF [Suspect]
     Active Substance: TACROLIMUS\TACROLIMUS ANHYDROUS
     Dosage: 2.47 MG, QD
     Route: 048
     Dates: start: 20090914, end: 20090914
  77. PROGRAF [Suspect]
     Active Substance: TACROLIMUS\TACROLIMUS ANHYDROUS
     Dosage: 5.4 MG, QD
     Route: 048
     Dates: start: 20090917, end: 20090920
  78. PROGRAF [Suspect]
     Active Substance: TACROLIMUS\TACROLIMUS ANHYDROUS
     Dosage: 6 MG, QD
     Route: 048
     Dates: start: 20090922, end: 20090924
  79. PROGRAF [Suspect]
     Active Substance: TACROLIMUS\TACROLIMUS ANHYDROUS
     Dosage: 7 MG, QD
     Route: 048
     Dates: start: 20091216
  80. PROGRAF [Suspect]
     Active Substance: TACROLIMUS\TACROLIMUS ANHYDROUS
     Dosage: 4.7 MG, QD
     Route: 048
     Dates: start: 20100104, end: 20100121
  81. PROGRAF [Suspect]
     Active Substance: TACROLIMUS\TACROLIMUS ANHYDROUS
     Dosage: 6.0 MG, UNK
     Route: 048
     Dates: start: 20100407
  82. PROGRAF [Suspect]
     Active Substance: TACROLIMUS\TACROLIMUS ANHYDROUS
     Dosage: 3.4 MG, QD
     Route: 048
     Dates: start: 20110725, end: 20110926
  83. PROGRAF [Suspect]
     Active Substance: TACROLIMUS\TACROLIMUS ANHYDROUS
     Dosage: 2.7 MG, QD
     Route: 048
     Dates: start: 20111101
  84. PROGRAF [Suspect]
     Active Substance: TACROLIMUS\TACROLIMUS ANHYDROUS
     Dosage: 2.2 MG, QD
     Route: 048
     Dates: start: 20120324, end: 20120521
  85. PROGRAF [Suspect]
     Active Substance: TACROLIMUS\TACROLIMUS ANHYDROUS
     Dosage: 2.7 MG, QD
     Route: 048
     Dates: start: 20121215, end: 20121215
  86. AKINETON [Suspect]
     Active Substance: BIPERIDEN HYDROCHLORIDE
     Dosage: 3 MG, QD
     Route: 048
     Dates: start: 20090831, end: 20090901
  87. RASENAZOLIN [Concomitant]
     Active Substance: CEFAZOLIN SODIUM
     Dosage: 3 G, UNK
     Route: 042
     Dates: start: 20090801, end: 20090810
  88. CERTICAN [Suspect]
     Active Substance: EVEROLIMUS
     Dosage: 1 MG, QD
     Route: 048
     Dates: start: 20140627, end: 20141009
  89. PROGRAF [Suspect]
     Active Substance: TACROLIMUS\TACROLIMUS ANHYDROUS
     Dosage: 5.0 MG, QD
     Route: 045
     Dates: start: 20090902, end: 20090913
  90. PROGRAF [Suspect]
     Active Substance: TACROLIMUS\TACROLIMUS ANHYDROUS
     Dosage: 3.2 MG, QD
     Route: 048
     Dates: start: 20111227
  91. PROGRAF [Suspect]
     Active Substance: TACROLIMUS\TACROLIMUS ANHYDROUS
     Dosage: 3 MG, QD
     Route: 048
     Dates: end: 20120130
  92. PROGRAF [Suspect]
     Active Substance: TACROLIMUS\TACROLIMUS ANHYDROUS
     Dosage: 1.5 MG, QD
     Route: 048
     Dates: start: 20121214, end: 20121214
  93. PROGRAF [Suspect]
     Active Substance: TACROLIMUS\TACROLIMUS ANHYDROUS
     Dosage: 3.5 MG, QD
     Route: 048
     Dates: start: 20121217, end: 20121217
  94. PREDONINE [Suspect]
     Active Substance: PREDNISOLONE
     Dosage: 7.5 MG, QD
     Route: 048
     Dates: start: 20100327, end: 201004
  95. RISPERDAL [Concomitant]
     Active Substance: RISPERIDONE
     Indication: PRODUCT USED FOR UNKNOWN INDICATION
     Dosage: 3 MG, UNK
     Route: 048
     Dates: start: 20080814, end: 20090823
  96. RISPERDAL [Concomitant]
     Active Substance: RISPERIDONE
     Dosage: 2 MG, UNK
     Route: 048
     Dates: start: 20090831, end: 20090901
  97. DAIKENCHUTO [Concomitant]
     Active Substance: HERBALS
     Indication: PRODUCT USED FOR UNKNOWN INDICATION
     Dosage: UNK
     Route: 048
     Dates: start: 20090824, end: 20090901
  98. SULPERAZON [Concomitant]
     Active Substance: CEFOPERAZONE SODIUM\SULBACTAM SODIUM
     Indication: PRODUCT USED FOR UNKNOWN INDICATION
     Dosage: 1 G, UNK
     Route: 042
     Dates: start: 20090920, end: 20090926
  99. DIFLUCAN [Concomitant]
     Active Substance: FLUCONAZOLE
     Indication: PRODUCT USED FOR UNKNOWN INDICATION
     Dosage: 200 MG, UNK
     Route: 048
     Dates: start: 20091211, end: 20091213
  100. ROCEPHIN [Concomitant]
     Active Substance: CEFTRIAXONE SODIUM
     Indication: PRODUCT USED FOR UNKNOWN INDICATION
     Dosage: UNK
     Route: 065
     Dates: start: 20100401, end: 20100402
  101. ACICLOVIR [Concomitant]
     Active Substance: ACYCLOVIR
     Dosage: 750 UNK, UNK
     Route: 042
     Dates: start: 20100421
  102. CERTICAN [Suspect]
     Active Substance: EVEROLIMUS
     Dosage: 1 MG,QD
     Route: 048
     Dates: start: 20090807, end: 20090807
  103. CERTICAN [Suspect]
     Active Substance: EVEROLIMUS
     Dosage: 0.75 MG, QD
     Route: 048
     Dates: start: 20100309, end: 20100315
  104. CERTICAN [Suspect]
     Active Substance: EVEROLIMUS
     Dosage: 0.5 MG, QD
     Route: 048
     Dates: start: 20100316, end: 20100415
  105. CERTICAN [Suspect]
     Active Substance: EVEROLIMUS
     Dosage: 0.75 MG, QD
     Route: 048
     Dates: start: 20140418, end: 20140626
  106. PROGRAF [Suspect]
     Active Substance: TACROLIMUS\TACROLIMUS ANHYDROUS
     Dosage: 4.0 MG, QD
     Route: 048
     Dates: start: 20090815, end: 20090816
  107. PROGRAF [Suspect]
     Active Substance: TACROLIMUS\TACROLIMUS ANHYDROUS
     Dosage: 4.9 MG, QD
     Route: 048
     Dates: start: 20090916, end: 20090916
  108. PROGRAF [Suspect]
     Active Substance: TACROLIMUS\TACROLIMUS ANHYDROUS
     Dosage: 6.7 MG, QD
     Route: 048
     Dates: start: 20091022, end: 20091108
  109. PROGRAF [Suspect]
     Active Substance: TACROLIMUS\TACROLIMUS ANHYDROUS
     Dosage: 6.4 MG, QD
     Route: 048
     Dates: end: 20100103
  110. PROGRAF [Suspect]
     Active Substance: TACROLIMUS\TACROLIMUS ANHYDROUS
     Dosage: 5.8 MG, QD
     Route: 048
     Dates: start: 20100128, end: 20100215
  111. PROGRAF [Suspect]
     Active Substance: TACROLIMUS\TACROLIMUS ANHYDROUS
     Dosage: 5.4 MG, QD
     Route: 048
     Dates: start: 20100621, end: 20100711
  112. PROGRAF [Suspect]
     Active Substance: TACROLIMUS\TACROLIMUS ANHYDROUS
     Dosage: 3 MG, QD
     Route: 048
     Dates: start: 20111025, end: 20111030
  113. PROGRAF [Suspect]
     Active Substance: TACROLIMUS\TACROLIMUS ANHYDROUS
     Dosage: 2 MG, QD
     Route: 048
     Dates: start: 20120522, end: 20120618
  114. PROGRAF [Suspect]
     Active Substance: TACROLIMUS\TACROLIMUS ANHYDROUS
     Dosage: 2 MG, QD
     Route: 048
     Dates: start: 20120629, end: 20121212
  115. PROGRAF [Suspect]
     Active Substance: TACROLIMUS\TACROLIMUS ANHYDROUS
     Dosage: 2.2 MG, QD
     Route: 048
     Dates: start: 20121213, end: 20121213
  116. PREDONINE [Suspect]
     Active Substance: PREDNISOLONE
     Dosage: 10 MG, QD
     Route: 048
     Dates: start: 20090903, end: 20100326
  117. PREDONINE [Suspect]
     Active Substance: PREDNISOLONE
     Dosage: 5 MG, QD
     Route: 048
     Dates: start: 20100424, end: 201005
  118. TRAZODONE [Concomitant]
     Active Substance: TRAZODONE HYDROCHLORIDE
     Dosage: 25 MG, UNK
     Route: 048
     Dates: start: 20090824, end: 20090831
  119. NOVOLIN 30R [Concomitant]
     Active Substance: INSULIN HUMAN
     Indication: PRODUCT USED FOR UNKNOWN INDICATION
     Dosage: UNK
     Route: 058
     Dates: start: 20100119
  120. DIFLUCAN [Concomitant]
     Active Substance: FLUCONAZOLE
     Dosage: UNK
     Route: 048
     Dates: start: 20091225, end: 20091228
  121. VFEND [Concomitant]
     Active Substance: VORICONAZOLE
     Indication: PRODUCT USED FOR UNKNOWN INDICATION
     Dosage: 300 MG, UNK
     Route: 048
     Dates: start: 20091214, end: 20091224
  122. GLIMICRON [Concomitant]
     Active Substance: GLICLAZIDE
     Indication: PRODUCT USED FOR UNKNOWN INDICATION
     Dosage: 20 MG, UNK
     Route: 048
     Dates: start: 20100227, end: 20100621

REACTIONS (15)
  - Stupor [Unknown]
  - Platelet count decreased [Recovered/Resolved]
  - Aspergillosis oral [Recovered/Resolved]
  - Diabetes mellitus [Not Recovered/Not Resolved]
  - Ileus [Recovering/Resolving]
  - Infected dermal cyst [Recovering/Resolving]
  - Decreased appetite [Unknown]
  - Folliculitis [Recovering/Resolving]
  - Altered state of consciousness [Recovered/Resolved]
  - Coronary artery stenosis [Recovering/Resolving]
  - Herpes zoster [Recovered/Resolved]
  - Hypertension [Recovering/Resolving]
  - Tremor [Unknown]
  - Pneumonia aspiration [Recovering/Resolving]
  - Malnutrition [Recovering/Resolving]

NARRATIVE: CASE EVENT DATE: 20090820
